FAERS Safety Report 12095491 (Version 1)
Quarter: 2016Q1

REPORT INFORMATION
  Report Type: Spontaneous
  Country: MA (occurrence: MA)
  Receive Date: 20160219
  Receipt Date: 20160219
  Transmission Date: 20160526
  Serious: Yes (Hospitalization, Other)
  Sender: FDA-Public Use
  Company Number: MA-ACTAVIS-2016-03317

PATIENT
  Age: 5 Year
  Sex: Male

DRUGS (3)
  1. VINCRISTINE (UNKNOWN) [Suspect]
     Active Substance: VINCRISTINE
     Indication: NEPHROBLASTOMA
     Dosage: 2/3 OF THE RECOMMENDED DOSES
     Route: 065
     Dates: start: 2005
  2. ACTINOMYCIN D [Suspect]
     Active Substance: DACTINOMYCIN
     Indication: NEPHROBLASTOMA
     Dosage: 2/3 OF THE RECOMMENDED DOSES
     Route: 065
     Dates: start: 2005
  3. DOXORUBICIN (UNKNOWN) [Suspect]
     Active Substance: DOXORUBICIN
     Indication: NEPHROBLASTOMA
     Dosage: 2/3 OF THE RECOMMENDED DOSES
     Route: 065
     Dates: start: 2005

REACTIONS (5)
  - Bone marrow failure [Unknown]
  - Renal failure [Recovered/Resolved]
  - Toxicity to various agents [Recovered/Resolved]
  - Drug ineffective [Unknown]
  - Cardiac failure [Recovered/Resolved]
